FAERS Safety Report 13183252 (Version 3)
Quarter: 2017Q1

REPORT INFORMATION
  Report Type: Spontaneous
  Country: IT (occurrence: IT)
  Receive Date: 20170203
  Receipt Date: 20170213
  Transmission Date: 20170428
  Serious: No
  Sender: FDA-Public Use
  Company Number: IT-009507513-1701ITA009368

PATIENT
  Age: 78 Year
  Sex: Male

DRUGS (1)
  1. INEGY 10 MG/10 MG COMPRESSE [Suspect]
     Active Substance: EZETIMIBE\SIMVASTATIN
     Dosage: UNK
     Route: 048

REACTIONS (1)
  - Blood bilirubin unconjugated increased [Unknown]
